FAERS Safety Report 7302372-7 (Version None)
Quarter: 2011Q1

REPORT INFORMATION
  Report Type: 
  Country: None (occurrence: None)
  Receive Date: 20110218
  Receipt Date: 20110217
  Transmission Date: 20110831
  Serious: Yes (Hospitalization)
  Sender: FDA-Public Use
  Company Number: CZ-PFIZER INC-2009198114

PATIENT
  Age: 64 Year
  Sex: Male
  Weight: 106 kg

DRUGS (5)
  1. PRESTARIUM [Concomitant]
     Dosage: UNK
     Route: 048
     Dates: start: 20090108
  2. ESSENTIALE FORTE [Concomitant]
     Route: 048
  3. GODASAL [Concomitant]
     Dosage: 100 MG, UNK
     Route: 048
  4. ATROVENT [Concomitant]
  5. SUNITINIB MALATE [Suspect]
     Indication: RENAL CANCER
     Dosage: 50 MG, 1X/DAY
     Route: 048
     Dates: start: 20081208, end: 20090316

REACTIONS (1)
  - DERMATITIS EXFOLIATIVE [None]
